FAERS Safety Report 24712555 (Version 1)
Quarter: 2024Q4

REPORT INFORMATION
  Report Type: Spontaneous
  Country: JP (occurrence: JP)
  Receive Date: 20241209
  Receipt Date: 20241209
  Transmission Date: 20250115
  Serious: Yes (Hospitalization, Other)
  Sender: ARDELYX
  Company Number: JP-ARDELYX-2024ARDX008694

PATIENT
  Sex: Female

DRUGS (7)
  1. TENAPANOR HYDROCHLORIDE [Suspect]
     Active Substance: TENAPANOR HYDROCHLORIDE
     Indication: Hyperphosphataemia
     Dosage: 5 MILLIGRAM
     Route: 048
     Dates: start: 202404, end: 20240811
  2. EVOCALCET [Suspect]
     Active Substance: EVOCALCET
     Indication: Product used for unknown indication
     Dosage: 4 MILLIGRAM
     Route: 048
  3. ATORVASTATIN [Concomitant]
     Active Substance: ATORVASTATIN
     Indication: Product used for unknown indication
     Route: 065
  4. FEBUXOSTAT [Concomitant]
     Active Substance: FEBUXOSTAT
     Indication: Product used for unknown indication
     Route: 065
  5. RABEPRAZOLE SODIUM [Concomitant]
     Active Substance: RABEPRAZOLE SODIUM
     Indication: Product used for unknown indication
     Route: 065
  6. NIFEDIPINE CR SANWA [Concomitant]
     Indication: Product used for unknown indication
     Route: 065
  7. CALBLOCK [Concomitant]
     Active Substance: AZELNIDIPINE
     Indication: Product used for unknown indication
     Route: 065

REACTIONS (1)
  - Thalamus haemorrhage [Unknown]

NARRATIVE: CASE EVENT DATE: 20240811
